FAERS Safety Report 7972691-X (Version None)
Quarter: 2011Q4

REPORT INFORMATION
  Report Type: 
  Country: None (occurrence: None)
  Receive Date: 20111213
  Receipt Date: 20111206
  Transmission Date: 20120403
  Serious: Yes (Hospitalization)
  Sender: FDA-Public Use
  Company Number: DE-ROCHE-1019665

PATIENT
  Sex: Female
  Weight: 78 kg

DRUGS (4)
  1. XELODA [Suspect]
     Indication: BREAST CANCER
     Dosage: LAST DOSE PRIOR TO SAE: 21/APR/2011
     Route: 048
     Dates: start: 20101112
  2. MIRTAZAPINE [Concomitant]
     Dates: start: 20110819
  3. FEMARA [Concomitant]
     Dates: start: 20110429
  4. AVASTIN [Suspect]
     Indication: BREAST CANCER
     Dosage: LAST DOSE PRIOR TO SAE: 19/AUG/2011
     Route: 042
     Dates: start: 20111112

REACTIONS (3)
  - BLOOD CALCIUM INCREASED [None]
  - HIGH FREQUENCY ABLATION [None]
  - BLOOD SODIUM DECREASED [None]
